FAERS Safety Report 5946643-5 (Version None)
Quarter: 2008Q4

REPORT INFORMATION
  Report Type: 
  Country: None (occurrence: None)
  Receive Date: 20081110
  Receipt Date: 20081029
  Transmission Date: 20090506
  Serious: Yes (Life-Threatening, Hospitalization, Other)
  Sender: FDA-Public Use
  Company Number: US-ROCHE-575257

PATIENT
  Sex: Female

DRUGS (13)
  1. CAPECITABINE [Suspect]
     Indication: COLORECTAL CANCER
     Route: 048
     Dates: start: 20080620
  2. CAPECITABINE [Suspect]
     Route: 048
     Dates: start: 20080711
  3. LAPATINIB [Suspect]
     Indication: COLORECTAL CANCER
     Route: 048
     Dates: start: 20080620
  4. LAPATINIB [Suspect]
     Route: 048
  5. LAPATINIB [Suspect]
     Route: 048
     Dates: start: 20080711
  6. OXALIPLATIN [Suspect]
     Indication: COLORECTAL CANCER
     Route: 042
     Dates: start: 20080620
  7. OXALIPLATIN [Suspect]
     Route: 042
     Dates: start: 20080711
  8. CETRIZINE [Concomitant]
     Dosage: DRUG: CETRIZINE HYDROCHLORIDE
  9. LISINOPRIL [Concomitant]
  10. RANITIDINE HYDROCHLORIDE [Concomitant]
  11. MYLANTA [Concomitant]
  12. ONDANSETRON [Concomitant]
     Dates: start: 20080711, end: 20080711
  13. APREPITANT [Concomitant]
     Dates: start: 20080711, end: 20080711

REACTIONS (6)
  - DEHYDRATION [None]
  - DIARRHOEA [None]
  - HYPOKALAEMIA [None]
  - NAUSEA [None]
  - VAGUS NERVE DISORDER [None]
  - VOMITING [None]
